FAERS Safety Report 8183826-0 (Version None)
Quarter: 2012Q1

REPORT INFORMATION
  Report Type: 
  Country: None (occurrence: None)
  Receive Date: 20120305
  Receipt Date: 20120224
  Transmission Date: 20120608
  Serious: Yes (Other)
  Sender: FDA-Public Use
  Company Number: US-PFIZER INC-2011310907

PATIENT
  Sex: Female

DRUGS (19)
  1. PAXIL [Concomitant]
     Dosage: 20 MG 1 TABLET IN THE MORNING ^BID^
  2. LYRICA [Suspect]
     Indication: SLEEP DISORDER
  3. LANTUS [Concomitant]
     Dosage: 0.1 ML (100 UNIT/ML), 1X/DAY
  4. LASIX [Concomitant]
     Dosage: 20 MG, 1X/DAY
  5. SPIRONOLACTONE [Concomitant]
     Dosage: 25 MG, 2X/DAY
  6. METFORMIN [Concomitant]
     Dosage: 500 MG AS DIRECTED TWO TWICE DAILY
  7. VITAMIN B-12 [Concomitant]
     Dosage: 1000 UG, 1X/DAY
  8. LYRICA [Suspect]
     Indication: FIBROMYALGIA
     Dosage: 150 MG, 2X/DAY
     Route: 048
  9. LOVAZA [Concomitant]
     Dosage: 1000 MG, 1X/DAY WITH A MEAL
  10. PRILOSEC [Concomitant]
     Dosage: 40 MG, 1X/DAY
     Route: 048
  11. AMARYL [Concomitant]
     Dosage: 4 MG, 1X/DAY
  12. ALPRAZOLAM [Concomitant]
     Indication: SLEEP DISORDER
     Dosage: 0.5 MG, 2X/DAY
     Route: 048
  13. SYNTHROID [Concomitant]
     Dosage: 100 UG, 1X/DAY
  14. DETROL LA [Concomitant]
     Dosage: 4 MG, 1X/DAY
  15. ACETYLSALICYLIC ACID [Concomitant]
     Dosage: 81 MG, 1X/DAY
  16. FLEXERIL [Concomitant]
     Indication: SLEEP DISORDER
  17. BENAZEPRIL HYDROCHLORIDE [Concomitant]
     Dosage: 20 MG, 1X/DAY
  18. MULTI-VITAMINS [Concomitant]
     Dosage: AS DIRECTED
  19. FLEXERIL [Concomitant]
     Indication: FIBROMYALGIA
     Dosage: 10 MG, 3X/DAY

REACTIONS (8)
  - ARTHROPATHY [None]
  - FALL [None]
  - BACK DISORDER [None]
  - FACE INJURY [None]
  - COGNITIVE DISORDER [None]
  - JOINT INJURY [None]
  - SOMNOLENCE [None]
  - PAIN [None]
